FAERS Safety Report 6674601-4 (Version None)
Quarter: 2010Q2

REPORT INFORMATION
  Report Type: 
  Country: None (occurrence: None)
  Receive Date: 20100409
  Receipt Date: 20100331
  Transmission Date: 20101027
  Serious: Yes (Other)
  Sender: FDA-Public Use
  Company Number: JP-ROCHE-685152

PATIENT
  Sex: Female
  Weight: 41 kg

DRUGS (10)
  1. TAMIFLU [Suspect]
     Indication: INFLUENZA
     Route: 048
     Dates: start: 20100209, end: 20100209
  2. TAMIFLU [Suspect]
     Route: 048
     Dates: start: 20100210, end: 20100213
  3. TAMIFLU [Suspect]
     Route: 048
     Dates: start: 20100214, end: 20100214
  4. MADOPAR [Suspect]
     Indication: PARKINSON'S DISEASE
     Route: 048
     Dates: start: 19880101
  5. SELEGILINE HYDROCHLORIDE [Suspect]
     Indication: PARKINSON'S DISEASE
     Route: 048
     Dates: start: 20050625
  6. EXCEGRAN [Suspect]
     Indication: PARKINSON'S DISEASE
     Route: 048
     Dates: start: 20050530
  7. SIFROL [Suspect]
     Indication: PARKINSON'S DISEASE
     Dosage: DRUG NAME REPORTED AS BI_SIFROL
     Route: 048
  8. SIFROL [Suspect]
     Route: 048
  9. MUCOSTA [Concomitant]
     Route: 048
  10. SELEGILINE HYDROCHLORIDE [Concomitant]
     Route: 048

REACTIONS (5)
  - ABNORMAL BEHAVIOUR [None]
  - DRUG EFFECT DECREASED [None]
  - HALLUCINATION [None]
  - ON AND OFF PHENOMENON [None]
  - PRE-EXISTING CONDITION IMPROVED [None]
